FAERS Safety Report 7869698-X (Version None)
Quarter: 2011Q4

REPORT INFORMATION
  Report Type: 
  Country: None (occurrence: None)
  Receive Date: 20111028
  Receipt Date: 20110107
  Transmission Date: 20120403
  Serious: No
  Sender: FDA-Public Use
  Company Number: US-AMGEN-USASP2011001296

PATIENT
  Age: 63 Year

DRUGS (1)
  1. ENBREL [Suspect]
     Indication: PSORIASIS

REACTIONS (4)
  - HEADACHE [None]
  - DIZZINESS [None]
  - ABDOMINAL DISCOMFORT [None]
  - PYREXIA [None]
